FAERS Safety Report 19084148 (Version 1)
Quarter: 2021Q2

REPORT INFORMATION
  Report Type: Spontaneous
  Country: CN (occurrence: CN)
  Receive Date: 20210401
  Receipt Date: 20210401
  Transmission Date: 20210717
  Serious: Yes (Hospitalization, Other)
  Sender: FDA-Public Use
  Company Number: CN-PFIZER INC-2021305296

PATIENT
  Age: 50 Year
  Sex: Male

DRUGS (3)
  1. METHYLPREDNISOLONE. [Suspect]
     Active Substance: METHYLPREDNISOLONE
     Indication: VASCULITIS
     Dosage: 40 MG, DAILY
     Route: 048
  2. METHYLPREDNISOLONE. [Suspect]
     Active Substance: METHYLPREDNISOLONE
     Dosage: 20 MG, DAILY
     Route: 048
  3. TRIPTERYGIUM WILFORDII [Concomitant]
     Active Substance: HERBALS
     Indication: VASCULITIS
     Dosage: UNK (INTERMITTENT)
     Route: 048

REACTIONS (4)
  - Meningitis bacterial [Recovering/Resolving]
  - Nocardiosis [Recovering/Resolving]
  - Immunodeficiency [Unknown]
  - Off label use [Unknown]

NARRATIVE: CASE EVENT DATE: 20190607
